FAERS Safety Report 17088544 (Version 1)
Quarter: 2019Q4

REPORT INFORMATION
  Report Type: Spontaneous
  Country: CN (occurrence: CN)
  Receive Date: 20191128
  Receipt Date: 20191128
  Transmission Date: 20200122
  Serious: Yes (Life-Threatening, Other)
  Sender: FDA-Public Use
  Company Number: NVSC2019CN050389

PATIENT
  Sex: Female

DRUGS (1)
  1. ACLASTA [Suspect]
     Active Substance: ZOLEDRONIC ACID
     Indication: PRODUCT USED FOR UNKNOWN INDICATION
     Dosage: 5MG:100ML, (INTRAVENOUS INJECTION)
     Route: 042

REACTIONS (6)
  - Shock [Unknown]
  - Extravasation [Unknown]
  - Blood pressure decreased [Recovered/Resolved]
  - Urinary retention [Recovered/Resolved]
  - Generalised oedema [Recovered/Resolved]
  - Renal impairment [Unknown]
